FAERS Safety Report 10417234 (Version 3)
Quarter: 2014Q4

REPORT INFORMATION
  Report Type: Spontaneous
  Country: US (occurrence: US)
  Receive Date: 20140828
  Receipt Date: 20141028
  Transmission Date: 20150528
  Serious: Yes (Hospitalization, Other)
  Sender: FDA-Public Use
  Company Number: US-GILEAD-2014-0113357

PATIENT
  Age: 56 Year
  Weight: 66.2 kg

DRUGS (7)
  1. REMODULIN [Suspect]
     Active Substance: TREPROSTINIL
     Indication: COR PULMONALE CHRONIC
     Dosage: 100 NG/KG/MIN
     Route: 058
     Dates: start: 20140629, end: 201408
  2. LETAIRIS [Suspect]
     Active Substance: AMBRISENTAN
     Indication: PULMONARY ARTERIAL HYPERTENSION
     Dosage: 10 MG, QD
     Route: 065
     Dates: start: 20131205
  3. REMODULIN [Suspect]
     Active Substance: TREPROSTINIL
     Dosage: UNK
     Dates: start: 201408
  4. REMODULIN [Suspect]
     Active Substance: TREPROSTINIL
     Dosage: UNK
     Dates: start: 20120605, end: 20140628
  5. WARFARIN [Concomitant]
     Active Substance: WARFARIN
  6. LETAIRIS [Suspect]
     Active Substance: AMBRISENTAN
     Indication: PULMONARY HYPERTENSION
  7. ADCIRCA [Concomitant]
     Active Substance: TADALAFIL

REACTIONS (11)
  - Brain natriuretic peptide increased [Unknown]
  - Pulmonary arterial hypertension [Unknown]
  - Patient-device incompatibility [Unknown]
  - Injection site pain [Recovered/Resolved]
  - Fluid retention [Recovered/Resolved]
  - Muscle spasms [Unknown]
  - Unevaluable event [Recovered/Resolved]
  - Dyspnoea [Unknown]
  - Cardiac failure acute [Unknown]
  - Skin irritation [Unknown]
  - Blood creatinine increased [Unknown]

NARRATIVE: CASE EVENT DATE: 201408
